FAERS Safety Report 15101680 (Version 3)
Quarter: 2018Q3

REPORT INFORMATION
  Report Type: Spontaneous
  Country: IT (occurrence: GB)
  Receive Date: 20180703
  Receipt Date: 20180810
  Transmission Date: 20181010
  Serious: Yes (Life-Threatening, Hospitalization, Other)
  Sender: FDA-Public Use
  Company Number: IT-SUNOVION-2018SUN002639

PATIENT
  Age: 57 Year
  Sex: Male
  Weight: 103.5 kg

DRUGS (9)
  1. LATUDA [Suspect]
     Active Substance: LURASIDONE HYDROCHLORIDE
     Indication: SCHIZOPHRENIA
     Dosage: 74 MG, QD
     Route: 048
     Dates: start: 20170106
  2. CLARITHROMYCIN. [Suspect]
     Active Substance: CLARITHROMYCIN
     Indication: CELLULITIS
     Dosage: CUMULATIVE DOSE AT 7000MG
     Dates: start: 20180513, end: 20180608
  3. VORTIOXETINE. [Concomitant]
     Active Substance: VORTIOXETINE
  4. RIVAROXABAN [Concomitant]
     Active Substance: RIVAROXABAN
  5. CHOLECALCIFEROL [Concomitant]
     Active Substance: CHOLECALCIFEROL
  6. LATUDA [Suspect]
     Active Substance: LURASIDONE HYDROCHLORIDE
     Dosage: 111 MG, QD
     Route: 048
     Dates: start: 20170106
  7. LITHIUM. [Concomitant]
     Active Substance: LITHIUM
  8. CLONAZEPAM. [Concomitant]
     Active Substance: CLONAZEPAM
  9. CODEINE PHOSPHATE [Concomitant]
     Active Substance: CODEINE PHOSPHATE

REACTIONS (3)
  - Drug interaction [Unknown]
  - Neuroleptic malignant syndrome [Recovering/Resolving]
  - Musculoskeletal stiffness [Recovering/Resolving]

NARRATIVE: CASE EVENT DATE: 20180506
